FAERS Safety Report 25417512 (Version 2)
Quarter: 2025Q2

REPORT INFORMATION
  Report Type: Spontaneous
  Country: US (occurrence: US)
  Receive Date: 20250610
  Receipt Date: 20250613
  Transmission Date: 20250716
  Serious: No
  Sender: PFIZER
  Company Number: US-PFIZER INC-PV202500069358

PATIENT
  Age: 78 Year
  Sex: Female

DRUGS (1)
  1. INLYTA [Suspect]
     Active Substance: AXITINIB

REACTIONS (7)
  - Blood pressure decreased [Unknown]
  - Dissociative amnesia [Unknown]
  - Impaired driving ability [Unknown]
  - Speech disorder [Unknown]
  - Vocal cord disorder [Unknown]
  - Condition aggravated [Unknown]
  - Fatigue [Unknown]
